FAERS Safety Report 4308099-8 (Version None)
Quarter: 2004Q1

REPORT INFORMATION
  Report Type: 
  Country: None (occurrence: None)
  Receive Date: 20040301
  Receipt Date: 20030507
  Transmission Date: 20041129
  Serious: No
  Sender: FDA-Public Use
  Company Number: US-BRISTOL-MYERS SQUIBB COMPANY-12270690

PATIENT
  Age: 63 Year
  Sex: Female
  Weight: 77 kg

DRUGS (7)
  1. GLUCOPHAGE [Suspect]
     Indication: DIABETES MELLITUS
     Route: 048
     Dates: start: 19970101, end: 20030319
  2. GLUCOTROL XL [Concomitant]
  3. PRILOSEC [Concomitant]
  4. LIPITOR [Concomitant]
  5. CALTRATE [Concomitant]
  6. MULTIVITAMIN [Concomitant]
  7. LIBRAX [Concomitant]

REACTIONS (2)
  - DIARRHOEA [None]
  - DRUG HYPERSENSITIVITY [None]
